FAERS Safety Report 9744405 (Version 5)
Quarter: 2014Q1

REPORT INFORMATION
  Report Type: Report from Study
  Country: FR (occurrence: FR)
  Receive Date: 20131210
  Receipt Date: 20140303
  Transmission Date: 20141002
  Serious: Yes (Death, Other)
  Sender: FDA-Public Use
  Company Number: FR-TEVA-449614USA

PATIENT
  Age: 74 Year
  Sex: Male
  Weight: 59 kg

DRUGS (21)
  1. BENDAMUSTINE [Suspect]
     Indication: B-CELL SMALL LYMPHOCYTIC LYMPHOMA
     Dosage: 2.5MG/ML
     Route: 041
     Dates: start: 20121212
  2. BENDAMUSTINE [Suspect]
     Dosage: 2.5MG/ML
     Route: 041
     Dates: start: 20130109
  3. BENDAMUSTINE [Suspect]
     Dosage: 2.5MG/ML
     Route: 041
     Dates: start: 20130206
  4. BENDAMUSTINE [Suspect]
     Dosage: 2.5MG/ML
     Route: 041
     Dates: start: 20130404
  5. BENDAMUSTINE [Suspect]
     Dosage: 2.5MG/ML
     Route: 041
     Dates: start: 20130502
  6. ARZERRA [Suspect]
     Indication: B-CELL SMALL LYMPHOCYTIC LYMPHOMA
     Route: 041
     Dates: start: 20121204
  7. ARZERRA [Suspect]
     Route: 041
     Dates: start: 20121212
  8. ARZERRA [Suspect]
     Route: 041
     Dates: start: 20130109
  9. ARZERRA [Suspect]
     Route: 041
     Dates: start: 20130206
  10. ARZERRA [Suspect]
     Route: 041
     Dates: start: 20130404
  11. ARZERRA [Suspect]
     Route: 041
     Dates: start: 20130502
  12. METHYLPREDNISOLONE [Concomitant]
     Indication: B-CELL SMALL LYMPHOCYTIC LYMPHOMA
     Route: 042
     Dates: start: 20121212
  13. METHYLPREDNISOLONE [Concomitant]
     Route: 042
  14. METHYLPREDNISOLONE [Concomitant]
     Route: 042
  15. METHYLPREDNISOLONE [Concomitant]
     Route: 042
  16. BACTRIM [Concomitant]
     Indication: INFECTION PROPHYLAXIS
     Dosage: 400 MILLIGRAM DAILY;
     Route: 048
     Dates: start: 20121212
  17. ORACILLINE [Concomitant]
     Indication: INFECTION PROPHYLAXIS
     Dosage: 1  DAILY; MIU
     Route: 048
     Dates: start: 20121212
  18. ZELITREX [Concomitant]
     Indication: INFECTION PROPHYLAXIS
     Dosage: 1 GRAM DAILY;
     Route: 048
     Dates: start: 20121212
  19. INSULIN [Concomitant]
     Indication: HYPERGLYCAEMIA
     Route: 058
     Dates: start: 20130116
  20. LEDERFOLINE [Concomitant]
     Indication: ANAEMIA
     Dosage: /WEEK
     Route: 048
  21. FRAGMINE [Concomitant]
     Indication: THROMBOSIS
     Dosage: 10  DAILY; MIU
     Route: 058
     Dates: start: 20130524

REACTIONS (2)
  - Hypogammaglobulinaemia [Fatal]
  - Diarrhoea [Recovered/Resolved]
